FAERS Safety Report 25571138 (Version 1)
Quarter: 2025Q3

REPORT INFORMATION
  Report Type: Other
  Country: CN (occurrence: CN)
  Receive Date: 20250717
  Receipt Date: 20250717
  Transmission Date: 20251021
  Serious: Yes (Hospitalization)
  Sender: ANI
  Company Number: CN-ANIPHARMA-023559

PATIENT
  Age: 67 Year
  Sex: Male

DRUGS (5)
  1. CLARITHROMYCIN [Suspect]
     Active Substance: CLARITHROMYCIN
     Indication: Granuloma skin
     Route: 048
  2. CEFIXIME [Concomitant]
     Active Substance: CEFIXIME
     Indication: Evidence based treatment
  3. POLYMYXIN B [Concomitant]
     Active Substance: POLYMYXIN B
     Indication: Product used for unknown indication
  4. SILVER SULFADIAZINE [Concomitant]
     Active Substance: SILVER SULFADIAZINE
     Indication: Granuloma skin
  5. Nifuratel/Nystatin [Concomitant]
     Indication: Granuloma skin

REACTIONS (3)
  - Face oedema [Unknown]
  - Oedema peripheral [Unknown]
  - Blood pressure decreased [Unknown]
